FAERS Safety Report 5460654-8 (Version None)
Quarter: 2007Q3

REPORT INFORMATION
  Report Type: 
  Country: None (occurrence: None)
  Receive Date: 20070918
  Receipt Date: 20070904
  Transmission Date: 20080115
  Serious: Yes (Other)
  Sender: FDA-Public Use
  Company Number: 02100-EUR-07-0113

PATIENT

DRUGS (2)
  1. CILOSTAZOL [Suspect]
     Dosage: 100 MG QOD
     Route: 048
  2. PHENPROCOUMON [Suspect]

REACTIONS (1)
  - PROTHROMBIN TIME PROLONGED [None]
